FAERS Safety Report 7461668-9 (Version None)
Quarter: 2011Q2

REPORT INFORMATION
  Report Type: 
  Country: None (occurrence: None)
  Receive Date: 20110506
  Receipt Date: 20110421
  Transmission Date: 20111010
  Serious: No
  Sender: FDA-Public Use
  Company Number: US-B.I. PHARMACEUTICALS,INC./RIDGEFIELD-2011-BP-05489BP

PATIENT
  Sex: Male

DRUGS (6)
  1. PROSCAR [Concomitant]
  2. WATER PILL [Concomitant]
  3. CARDURA [Concomitant]
  4. METOPROLOL SUCCINATE [Concomitant]
  5. PRADAXA [Suspect]
     Indication: CARDIAC DISORDER
     Dates: start: 20110301
  6. DIGOXIN [Concomitant]

REACTIONS (1)
  - MALAISE [None]
